FAERS Safety Report 8622579-6 (Version None)
Quarter: 2012Q3

REPORT INFORMATION
  Report Type: 
  Country: None (occurrence: None)
  Receive Date: 20120809
  Receipt Date: 20120727
  Transmission Date: 20120928
  Serious: Yes (Hospitalization)
  Sender: FDA-Public Use
  Company Number: 2012AP002303

PATIENT
  Age: 9 Year
  Sex: Male

DRUGS (5)
  1. BACLOFEN [Concomitant]
  2. TRIHEXYPHENIDYL HCL [Concomitant]
  3. CARBIDOPA AND LEVODOPA [Suspect]
     Indication: OFF LABEL USE
  4. CARBIDOPA AND LEVODOPA [Suspect]
     Indication: DYSTONIA
  5. CLONAZEPAM [Concomitant]

REACTIONS (7)
  - OFF LABEL USE [None]
  - ILEUS [None]
  - TRANSAMINASES INCREASED [None]
  - NEUROLEPTIC MALIGNANT SYNDROME [None]
  - AGITATION [None]
  - DEHYDRATION [None]
  - RESPIRATORY DISTRESS [None]
